FAERS Safety Report 5100112-3 (Version None)
Quarter: 2006Q3

REPORT INFORMATION
  Report Type: 
  Country: None (occurrence: None)
  Receive Date: 20060802
  Receipt Date: 20060328
  Transmission Date: 20061208
  Serious: Yes (Hospitalization)
  Sender: FDA-Public Use
  Company Number: 20060307114

PATIENT
  Age: 13 Year
  Sex: Female

DRUGS (2)
  1. ACETAMINOPHEN [Suspect]
     Indication: DRUG USE FOR UNKNOWN INDICATION
     Dosage: SEE IMAGE
     Route: 048
     Dates: start: 20060325, end: 20060325
  2. ACETAMINOPHEN [Suspect]
     Indication: DRUG USE FOR UNKNOWN INDICATION
     Dosage: SEE IMAGE
     Route: 048
     Dates: start: 20060326, end: 20060326

REACTIONS (3)
  - ABDOMINAL PAIN UPPER [None]
  - INTENTIONAL OVERDOSE [None]
  - VOMITING [None]
